FAERS Safety Report 11529527 (Version 1)
Quarter: 2015Q3

REPORT INFORMATION
  Report Type: Spontaneous
  Country: CN (occurrence: CN)
  Receive Date: 20150921
  Receipt Date: 20150921
  Transmission Date: 20151125
  Serious: Yes (Hospitalization)
  Sender: FDA-Public Use
  Company Number: CN-BAYER-2015-419584

PATIENT
  Age: 61 Year
  Sex: Male

DRUGS (2)
  1. TELMISARTAN. [Concomitant]
     Active Substance: TELMISARTAN
     Indication: HYPERTENSION
  2. AVELOX [Suspect]
     Active Substance: MOXIFLOXACIN HYDROCHLORIDE
     Indication: OTITIS MEDIA
     Dosage: UNK
     Route: 048
     Dates: start: 20140714

REACTIONS (6)
  - Drug hypersensitivity [Recovered/Resolved]
  - Diarrhoea [Recovered/Resolved]
  - Acute myocardial infarction [Recovered/Resolved]
  - Loss of consciousness [Recovered/Resolved]
  - Off label use [None]
  - Erythema [Recovered/Resolved]

NARRATIVE: CASE EVENT DATE: 20140714
